FAERS Safety Report 13385020 (Version 1)
Quarter: 2017Q1

REPORT INFORMATION
  Report Type: Spontaneous
  Country: US (occurrence: US)
  Receive Date: 20170330
  Receipt Date: 20170330
  Transmission Date: 20170429
  Serious: No
  Sender: FDA-Public Use
  Company Number: None

PATIENT
  Age: 66 Year
  Sex: Female
  Weight: 64.35 kg

DRUGS (6)
  1. FISH OIL [Concomitant]
     Active Substance: FISH OIL
  2. CYMBALTA [Suspect]
     Active Substance: DULOXETINE HYDROCHLORIDE
     Indication: DEPRESSION
  3. MAGNESIUM [Concomitant]
     Active Substance: MAGNESIUM
  4. MULTIVITAMIN [Concomitant]
     Active Substance: VITAMINS
  5. POTASSIUM [Concomitant]
     Active Substance: POTASSIUM
  6. NIACIN. [Suspect]
     Active Substance: NIACIN

REACTIONS (3)
  - Vitamin B complex deficiency [None]
  - Hyperhidrosis [None]
  - Dizziness [None]
